FAERS Safety Report 9062720 (Version 1)
Quarter: 2013Q1

REPORT INFORMATION
  Report Type: Report from Study
  Country: US (occurrence: US)
  Receive Date: 20130129
  Receipt Date: 20130129
  Transmission Date: 20140127
  Serious: No
  Sender: FDA-Public Use
  Company Number: US-ABBOTT-12P-163-0949103-00

PATIENT
  Sex: Male
  Weight: 147.55 kg

DRUGS (4)
  1. HUMIRA 40 MG/0.8 ML PEN [Suspect]
     Indication: PSORIASIS
     Route: 058
     Dates: start: 201204
  2. DRUG USED IN DIABETES [Concomitant]
     Indication: TYPE 2 DIABETES MELLITUS
     Route: 048
  3. INSULINS AND ANALOGUES,FAST-ACTING [Concomitant]
     Indication: TYPE 2 DIABETES MELLITUS
     Route: 058
  4. INSULINS AND ANALOGUES, LONG-ACTING [Concomitant]
     Indication: TYPE 2 DIABETES MELLITUS
     Route: 058

REACTIONS (3)
  - Melanocytic naevus [Recovering/Resolving]
  - Weight loss poor [Unknown]
  - Impaired healing [Recovering/Resolving]
